FAERS Safety Report 25726013 (Version 1)
Quarter: 2025Q3

REPORT INFORMATION
  Report Type: Spontaneous
  Country: US (occurrence: None)
  Receive Date: 20250823
  Receipt Date: 20250823
  Transmission Date: 20251021
  Serious: Yes (Life-Threatening)
  Sender: FDA-CTU
  Company Number: None

PATIENT
  Age: 34 Year
  Sex: Male
  Weight: 103.5 kg

DRUGS (3)
  1. FLUPHENAZINE [Suspect]
     Active Substance: FLUPHENAZINE
     Indication: Schizophrenia
  2. Tivcay [Concomitant]
  3. DESCOVY [Concomitant]
     Active Substance: EMTRICITABINE\TENOFOVIR ALAFENAMIDE FUMARATE

REACTIONS (10)
  - Hallucination [None]
  - Stress [None]
  - Spinal fracture [None]
  - Dyskinesia [None]
  - Oropharyngeal pain [None]
  - Glossodynia [None]
  - Odynophagia [None]
  - Hypersomnia [None]
  - Distractibility [None]
  - Pain [None]

NARRATIVE: CASE EVENT DATE: 20250823
